FAERS Safety Report 6199959-4 (Version None)
Quarter: 2009Q2

REPORT INFORMATION
  Report Type: 
  Country: None (occurrence: None)
  Receive Date: 20090520
  Receipt Date: 20090520
  Transmission Date: 20091009
  Serious: Yes (Death)
  Sender: FDA-Public Use
  Company Number: None

PATIENT
  Age: 58 Year
  Sex: Female
  Weight: 102.0593 kg

DRUGS (22)
  1. MEMANTINE HCL [Suspect]
     Dosage: 15 MG PO
     Route: 048
     Dates: start: 20090309, end: 20090516
  2. CARAFATE [Concomitant]
  3. MONTELUKAST [Concomitant]
  4. ALBUTEROL [Concomitant]
  5. NOVOLIN [Concomitant]
  6. NEXIUM [Concomitant]
  7. BENTYL [Concomitant]
  8. SOMA COMPOUND [Concomitant]
  9. LASIX [Concomitant]
  10. POTASSIUM CHLORIDE [Concomitant]
  11. PREDNISONE [Concomitant]
  12. HYDROCORTISONE/ACETAMINOPHEN [Concomitant]
  13. INSULIN [Concomitant]
  14. PHENERGAN [Concomitant]
  15. PREMARIN [Concomitant]
  16. SYMBICORT [Concomitant]
  17. DIFLUCAN [Concomitant]
  18. SALINE RINSE [Concomitant]
  19. FLONASE [Concomitant]
  20. ATROVENT [Concomitant]
  21. DEPO-ESTRADIOL [Concomitant]
  22. CELEXA [Concomitant]

REACTIONS (2)
  - PULSE ABSENT [None]
  - SLEEP APNOEA SYNDROME [None]
